FAERS Safety Report 6010277-7 (Version None)
Quarter: 2008Q4

REPORT INFORMATION
  Report Type: 
  Country: None (occurrence: None)
  Receive Date: 20081218
  Receipt Date: 20080410
  Transmission Date: 20090506
  Serious: No
  Sender: FDA-Public Use
  Company Number: A0722150A

PATIENT
  Age: 64 Year
  Sex: Male

DRUGS (15)
  1. FLONASE [Suspect]
     Route: 045
  2. VERAMYST [Suspect]
     Route: 045
     Dates: start: 20080101, end: 20080201
  3. UNKNOWN MEDICATION [Concomitant]
     Indication: DETOXIFICATION
  4. BREWERS YEAST [Concomitant]
  5. CHROMIUM PICOLINATE [Concomitant]
  6. HYDROCHLOROTHIAZIDE [Concomitant]
  7. ASCORBIC ACID [Concomitant]
  8. GARLIC OIL [Concomitant]
  9. B COMPLEX VITAMINS [Concomitant]
  10. COQ-10 [Concomitant]
  11. GREEN TEA EXTRACT [Concomitant]
  12. BILBERRY [Concomitant]
  13. MILK THISTLE [Concomitant]
  14. VITAMIN [Concomitant]
  15. NASAL SPRAY [Concomitant]

REACTIONS (2)
  - DRUG INEFFECTIVE [None]
  - NASAL CONGESTION [None]
